FAERS Safety Report 23771031 (Version 2)
Quarter: 2024Q2

REPORT INFORMATION
  Report Type: Spontaneous
  Country: US (occurrence: US)
  Receive Date: 20240423
  Receipt Date: 20240523
  Transmission Date: 20240716
  Serious: Yes (Hospitalization, Other)
  Sender: FDA-Public Use
  Company Number: US-KOANAAP-SML-US-2024-00314

PATIENT
  Age: 45 Year
  Sex: Female

DRUGS (2)
  1. CAPECITABINE [Suspect]
     Active Substance: CAPECITABINE
     Indication: Adenocarcinoma gastric
     Route: 065
  2. OXALIPLATIN [Suspect]
     Active Substance: OXALIPLATIN
     Indication: Adenocarcinoma gastric
     Route: 065

REACTIONS (4)
  - Cardiogenic shock [Recovering/Resolving]
  - Electrocardiogram QT prolonged [Recovering/Resolving]
  - Cardiotoxicity [Recovering/Resolving]
  - Cardiac arrest [Recovering/Resolving]
